FAERS Safety Report 18336257 (Version 2)
Quarter: 2020Q4

REPORT INFORMATION
  Report Type: Spontaneous
  Country: GB (occurrence: GB)
  Receive Date: 20201001
  Receipt Date: 20201008
  Transmission Date: 20210113
  Serious: Yes (Hospitalization, Disabling)
  Sender: FDA-Public Use
  Company Number: GB-TEVA-2020-GB-1832318

PATIENT
  Age: 75 Year
  Sex: Male
  Weight: 79 kg

DRUGS (8)
  1. WARFARIN [Suspect]
     Active Substance: WARFARIN
     Indication: ATRIAL FIBRILLATION
     Dosage: TAKE AS PRESCRIBED IN ANTICOAGULANT TREATMENT BOOK
     Route: 065
     Dates: start: 20200715
  2. EDOXABAN [Suspect]
     Active Substance: EDOXABAN TOSYLATE
     Dosage: ALONG WITH WARFARIN UNTIL INR }2, UNIT DOSE: 30 MG
     Route: 065
     Dates: start: 20200728, end: 20200811
  3. AMIODARONE [Concomitant]
     Active Substance: AMIODARONE
     Dosage: 200 MG
  4. OMEPRAZOLE. [Concomitant]
     Active Substance: OMEPRAZOLE
     Dosage: 20 MG
  5. WARFARIN [Suspect]
     Active Substance: WARFARIN
     Dosage: 3 MG
     Route: 065
     Dates: start: 20200728
  6. LERCANIDIPINE [Concomitant]
     Active Substance: LERCANIDIPINE
     Dosage: 10 MG
  7. RAMIPRIL. [Concomitant]
     Active Substance: RAMIPRIL
     Dosage: 10 MG
  8. BISOPROLOL [Concomitant]
     Active Substance: BISOPROLOL
     Dosage: 2.5 MG

REACTIONS (5)
  - Blindness unilateral [Unknown]
  - Malaise [Unknown]
  - Retinal vein occlusion [Not Recovered/Not Resolved]
  - Dizziness [Unknown]
  - Fatigue [Unknown]

NARRATIVE: CASE EVENT DATE: 20200807
